FAERS Safety Report 24752053 (Version 1)
Quarter: 2024Q4

REPORT INFORMATION
  Report Type: Spontaneous
  Country: CA (occurrence: CA)
  Receive Date: 20241219
  Receipt Date: 20241219
  Transmission Date: 20250115
  Serious: Yes (Other)
  Sender: CSL BEHRING
  Company Number: CA-BEH-2024187360

PATIENT
  Age: 56 Year
  Sex: Female

DRUGS (15)
  1. HUMAN C1-ESTERASE INHIBITOR [Suspect]
     Active Substance: HUMAN C1-ESTERASE INHIBITOR
     Indication: Product used for unknown indication
     Dosage: 6000 IU, Q3W
     Route: 065
  2. HUMAN C1-ESTERASE INHIBITOR [Suspect]
     Active Substance: HUMAN C1-ESTERASE INHIBITOR
     Dosage: 2000 IU, TIW
     Route: 065
  3. FIRAZYR [Suspect]
     Active Substance: ICATIBANT ACETATE
     Indication: Hereditary angioedema with C1 esterase inhibitor deficiency
     Dosage: UNK
     Route: 065
  4. FIRAZYR [Suspect]
     Active Substance: ICATIBANT ACETATE
     Indication: Hereditary angioedema
     Dosage: UNK
     Route: 065
  5. FIRAZYR [Suspect]
     Active Substance: ICATIBANT ACETATE
     Dosage: UNK
     Route: 058
  6. FIRAZYR [Suspect]
     Active Substance: ICATIBANT ACETATE
     Dosage: UNK
     Route: 065
  7. TAKHZYRO [Suspect]
     Active Substance: LANADELUMAB-FLYO
     Indication: Hereditary angioedema with C1 esterase inhibitor deficiency
     Dosage: UNK UNK, Q3W
     Route: 058
  8. TAKHZYRO [Suspect]
     Active Substance: LANADELUMAB-FLYO
     Dosage: UNK UNK, Q3W
     Route: 058
  9. TAKHZYRO [Suspect]
     Active Substance: LANADELUMAB-FLYO
     Dosage: UNK UNK, QOW
     Route: 058
  10. TAKHZYRO [Suspect]
     Active Substance: LANADELUMAB-FLYO
     Dosage: UNK UNK, QOW
     Route: 058
  11. TAKHZYRO [Suspect]
     Active Substance: LANADELUMAB-FLYO
     Dosage: 2 DF, QOW
     Route: 065
  12. RABEPRAZOLE [Concomitant]
     Active Substance: RABEPRAZOLE
  13. BERINERT [Concomitant]
     Active Substance: HUMAN C1-ESTERASE INHIBITOR
     Dosage: UNK
     Route: 065
  14. BERINERT [Concomitant]
     Active Substance: HUMAN C1-ESTERASE INHIBITOR
     Dosage: UNK
     Route: 065
  15. DILTIAZEM [Concomitant]
     Active Substance: DILTIAZEM

REACTIONS (3)
  - Hereditary angioedema [Recovered/Resolved]
  - Drug effect less than expected [Recovered/Resolved]
  - Blood pressure increased [Recovered/Resolved]
